FAERS Safety Report 5704911-6 (Version None)
Quarter: 2008Q2

REPORT INFORMATION
  Report Type: 
  Country: None (occurrence: None)
  Receive Date: 20080414
  Receipt Date: 20080319
  Transmission Date: 20081010
  Serious: No
  Sender: FDA-Public Use
  Company Number: US-BOEHRINGER INGELHEIM GMBH, GERMANY-2008-BP-04365BP

PATIENT
  Sex: Male

DRUGS (7)
  1. MIRAPEX [Suspect]
     Indication: RESTLESS LEGS SYNDROME
     Dates: start: 20070101
  2. CHOLESTEROL PILL [Concomitant]
     Indication: BLOOD CHOLESTEROL INCREASED
  3. OXYCONTON [Concomitant]
     Indication: SHOULDER ARTHROPLASTY
  4. OXYCODONE HCL [Concomitant]
     Indication: SHOULDER ARTHROPLASTY
  5. SIMVASTATIN [Concomitant]
     Indication: BLOOD CHOLESTEROL
  6. GABAPENTIN [Concomitant]
     Indication: NEURALGIA
  7. GABAPENTIN [Concomitant]
     Indication: HYPOAESTHESIA

REACTIONS (1)
  - ERECTILE DYSFUNCTION [None]
